FAERS Safety Report 25254128 (Version 3)
Quarter: 2025Q2

REPORT INFORMATION
  Report Type: Report from Study
  Country: US (occurrence: US)
  Receive Date: 20250430
  Receipt Date: 20250515
  Transmission Date: 20250716
  Serious: Yes (Hospitalization)
  Sender: BOEHRINGER INGELHEIM
  Company Number: US-BoehringerIngelheim-2025-BI-024332

PATIENT
  Age: 56 Year
  Sex: Female

DRUGS (2)
  1. CYLTEZO [Suspect]
     Active Substance: ADALIMUMAB-ADBM
     Indication: Psoriasis
     Dosage: INJECT 80 MG UNDER THE SKIN ON DAY 1,
  2. CYLTEZO [Suspect]
     Active Substance: ADALIMUMAB-ADBM
     Dosage: THEN ONE WEEK LATER START 40 MG EVERY 2 WEEKS (LOADING DOSE)

REACTIONS (4)
  - Drug ineffective [Unknown]
  - Surgery [Unknown]
  - Carpal tunnel syndrome [Unknown]
  - Psoriasis [Unknown]
